FAERS Safety Report 24902074 (Version 1)
Quarter: 2025Q1

REPORT INFORMATION
  Report Type: Spontaneous
  Country: US (occurrence: US)
  Receive Date: 20250129
  Receipt Date: 20250129
  Transmission Date: 20250408
  Serious: Yes (Disabling)
  Sender: AMGEN
  Company Number: US-AMGEN-USASP2025014791

PATIENT
  Age: 46 Year
  Sex: Male

DRUGS (5)
  1. RITUXIMAB [Suspect]
     Active Substance: RITUXIMAB
     Indication: Dermatomyositis
     Route: 065
  2. PREDNISONE [Suspect]
     Active Substance: PREDNISONE
     Indication: Dermatomyositis
     Route: 065
  3. MYCOPHENOLIC ACID [Concomitant]
     Active Substance: MYCOPHENOLIC ACID
     Indication: Dermatomyositis
  4. Immunoglobulin [Concomitant]
     Indication: Dermatomyositis
     Route: 040
  5. Immunoglobulin [Concomitant]
     Route: 040

REACTIONS (5)
  - Neuropathic pruritus [Recovering/Resolving]
  - Neuralgia [Unknown]
  - Benign neoplasm of skin [Unknown]
  - Drug effective for unapproved indication [Unknown]
  - Off label use [Unknown]
